FAERS Safety Report 6810014-X (Version None)
Quarter: 2010Q2

REPORT INFORMATION
  Report Type: 
  Country: None (occurrence: None)
  Receive Date: 20100630
  Receipt Date: 20100615
  Transmission Date: 20101027
  Serious: Yes (Hospitalization)
  Sender: FDA-Public Use
  Company Number: B0511406A

PATIENT
  Age: 67 Year
  Sex: Male

DRUGS (1)
  1. PAROXETINE [Suspect]
     Indication: MAJOR DEPRESSION
     Dosage: 20MG PER DAY
     Route: 048
     Dates: start: 20061111, end: 20061214

REACTIONS (31)
  - ABASIA [None]
  - AGITATION [None]
  - ALANINE AMINOTRANSFERASE INCREASED [None]
  - BLOOD PRESSURE INCREASED [None]
  - BLOOD UREA INCREASED [None]
  - CATATONIA [None]
  - CONFUSIONAL STATE [None]
  - DELUSION [None]
  - DIARRHOEA [None]
  - DISORIENTATION [None]
  - DYSPNOEA [None]
  - EMOTIONAL DISORDER [None]
  - HALLUCINATION, VISUAL [None]
  - HOMICIDAL IDEATION [None]
  - HOT FLUSH [None]
  - HYPERHIDROSIS [None]
  - HYPERREFLEXIA [None]
  - LEUKOCYTOSIS [None]
  - MUSCULOSKELETAL STIFFNESS [None]
  - MUTISM [None]
  - MYDRIASIS [None]
  - MYOCLONUS [None]
  - PATIENT RESTRAINT [None]
  - PSYCHOMOTOR RETARDATION [None]
  - PYREXIA [None]
  - RESPIRATORY RATE INCREASED [None]
  - SEROTONIN SYNDROME [None]
  - STUPOR [None]
  - TACHYCARDIA [None]
  - TREMOR [None]
  - WAXY FLEXIBILITY [None]
